FAERS Safety Report 26119698 (Version 1)
Quarter: 2025Q4

REPORT INFORMATION
  Report Type: Spontaneous
  Country: GB (occurrence: GB)
  Receive Date: 20251204
  Receipt Date: 20251204
  Transmission Date: 20260117
  Serious: Yes (Other)
  Sender: HIKMA
  Company Number: None

PATIENT
  Age: 62 Year
  Sex: Female
  Weight: 78 kg

DRUGS (13)
  1. DEXAMETHASONE [Suspect]
     Active Substance: DEXAMETHASONE
     Indication: Haemorrhage prophylaxis
     Dosage: ONE PACK FOR EACH NOSTRIL , REMOVED ONNCE NOTED RASH IN RECOVERY
     Route: 065
     Dates: start: 20251118
  2. IBUPROFEN [Suspect]
     Active Substance: IBUPROFEN
     Indication: Product used for unknown indication
     Dosage: UNKNOWN
     Route: 065
     Dates: start: 20251118
  3. LIDOCAINE HYDROCHLORIDE [Suspect]
     Active Substance: LIDOCAINE HYDROCHLORIDE
     Indication: Product used for unknown indication
     Dosage: UNKNOWN
     Route: 065
     Dates: start: 20251118
  4. MIDAZOLAM [Suspect]
     Active Substance: MIDAZOLAM
     Indication: Anxiety
     Dosage: UNKNOWN
     Route: 065
     Dates: start: 20251118
  5. NEOMYCIN [Suspect]
     Active Substance: NEOMYCIN
     Indication: Haemorrhage prophylaxis
     Dosage: ONE PACK FOR EACH NOSTRIL , REMOVED ONNCE NOTED RASH IN RECOVERY
     Route: 045
     Dates: start: 20251118
  6. ONDANSETRON [Suspect]
     Active Substance: ONDANSETRON
     Indication: Product used for unknown indication
     Dosage: UNKNOWN
     Route: 065
     Dates: start: 20251118
  7. OXYCODONE [Suspect]
     Active Substance: OXYCODONE
     Indication: General anaesthesia
     Dosage: UNKNOWN
     Route: 065
     Dates: start: 20251118
  8. ACETAMINOPHEN [Suspect]
     Active Substance: ACETAMINOPHEN
     Indication: Product used for unknown indication
     Dosage: UNKNOWN
     Route: 065
     Dates: start: 20251118
  9. POLYMYXIN [Suspect]
     Active Substance: POLYMYXIN
     Indication: Haemorrhage prophylaxis
     Dosage: ONE PACK FOR EACH NOSTRIL , REMOVED ONNCE NOTED RASH IN RECOVERY
     Route: 045
     Dates: start: 20251118
  10. PROPOFOL [Suspect]
     Active Substance: PROPOFOL
     Indication: General anaesthesia
     Dosage: UNKNOWN
     Route: 065
     Dates: start: 20251118
  11. REMIFENTANIL [Suspect]
     Active Substance: REMIFENTANIL
     Indication: General anaesthesia
     Dosage: UNKNOWN
     Route: 065
     Dates: start: 20251118
  12. ROCURONIUM [Suspect]
     Active Substance: ROCURONIUM BROMIDE
     Indication: Product used for unknown indication
     Dosage: UNKNOWN
     Route: 065
  13. SUGAMMADEX [Suspect]
     Active Substance: SUGAMMADEX
     Indication: Postoperative care
     Dosage: UNKNOWN
     Route: 065
     Dates: start: 20251118

REACTIONS (6)
  - Restlessness [Unknown]
  - Pallor [Unknown]
  - Rash pruritic [Recovering/Resolving]
  - Urticaria [Unknown]
  - Drug interaction [Unknown]
  - Medication error [Unknown]

NARRATIVE: CASE EVENT DATE: 20251118
